FAERS Safety Report 25856565 (Version 1)
Quarter: 2025Q3

REPORT INFORMATION
  Report Type: Spontaneous
  Country: EU (occurrence: EU)
  Receive Date: 20250929
  Receipt Date: 20250929
  Transmission Date: 20251021
  Serious: Yes (Other)
  Sender: ARGENX BVBA
  Company Number: EU-ARGENX-2025-ARGX-NL012914

PATIENT

DRUGS (1)
  1. EFGARTIGIMOD ALFA [Suspect]
     Active Substance: EFGARTIGIMOD ALFA
     Indication: Exposure during pregnancy
     Route: 064

REACTIONS (4)
  - Hypotonia neonatal [Not Recovered/Not Resolved]
  - Talipes [Recovered/Resolved]
  - Blood immunoglobulin G decreased [Unknown]
  - Foetal exposure during pregnancy [Recovered/Resolved]
